FAERS Safety Report 4323259-8 (Version None)
Quarter: 2004Q1

REPORT INFORMATION
  Report Type: 
  Country: None (occurrence: None)
  Receive Date: 20040322
  Receipt Date: 20040310
  Transmission Date: 20041129
  Serious: Yes (Hospitalization)
  Sender: FDA-Public Use
  Company Number: 2004195928ES

PATIENT
  Age: 70 Year
  Sex: Female

DRUGS (2)
  1. FARMIBLASTINA (DOXORUBICIN HYDROCHLORIDE) SOLUTION, STERILE [Suspect]
     Dosage: 109 MG, CYCLIC, IV
     Route: 042
     Dates: start: 20031117, end: 20031231
  2. PACLITAXEL [Suspect]
     Dosage: 270 MG, CYCLIC, IV
     Route: 042
     Dates: start: 20031117, end: 20031231

REACTIONS (6)
  - DEHYDRATION [None]
  - ENTERITIS [None]
  - FEBRILE NEUTROPENIA [None]
  - PERFORMANCE STATUS DECREASED [None]
  - PLATELET COUNT DECREASED [None]
  - PNEUMONIA [None]
